FAERS Safety Report 6127142-7 (Version None)
Quarter: 2009Q1

REPORT INFORMATION
  Report Type: 
  Country: None (occurrence: None)
  Receive Date: 20090320
  Receipt Date: 20090306
  Transmission Date: 20090719
  Serious: Yes (Other)
  Sender: FDA-Public Use
  Company Number: US-PFIZER INC-2009181487

PATIENT
  Sex: Male

DRUGS (3)
  1. TIKOSYN [Suspect]
     Indication: ATRIAL FIBRILLATION
     Dosage: UNK
     Dates: start: 20080715
  2. METOPROLOL [Concomitant]
  3. FUROSEMIDE [Concomitant]

REACTIONS (2)
  - ATRIAL FIBRILLATION [None]
  - INCORRECT DOSE ADMINISTERED [None]
